FAERS Safety Report 15849370 (Version 2)
Quarter: 2019Q1

REPORT INFORMATION
  Report Type: Report from Study
  Country: ZA (occurrence: ZA)
  Receive Date: 20190121
  Receipt Date: 20190213
  Transmission Date: 20190417
  Serious: Yes (Hospitalization)
  Sender: FDA-Public Use
  Company Number: ZA-SA-2018SA264141

PATIENT
  Age: 62 Year
  Sex: Male

DRUGS (8)
  1. SPIRACTIN [SPIRONOLACTONE] [Concomitant]
     Dosage: 50 MG, QD (BEFORE BREAKFAST)
     Dates: start: 20180813
  2. METFORMIN [Concomitant]
     Active Substance: METFORMIN HYDROCHLORIDE
     Dosage: 1000 MG, BID (AFTER BREAKFAST AND AFTER SUPPER)
     Dates: start: 20180813
  3. OPTISULIN (INSULIN GLARGINE) [Suspect]
     Active Substance: INSULIN GLARGINE
     Indication: TYPE 2 DIABETES MELLITUS
     Dosage: 12 U, HS, BED TIME
     Dates: start: 20180811
  4. URSOTAN [Concomitant]
     Dosage: 100 MG, TID (AFTER SUPPER, AFTER BREAKFAST, AFTER LUNCH)
  5. CALCIFEROL [COLECALCIFEROL] [Concomitant]
     Active Substance: CHOLECALCIFEROL
     Dosage: UNK
     Dates: start: 20180813
  6. ECOTRIN [Concomitant]
     Active Substance: ASPIRIN
     Dosage: 81 MG
     Route: 065
  7. EXFORGE [Concomitant]
     Active Substance: AMLODIPINE BESYLATE\VALSARTAN
     Dosage: 10 (UNIT UNKNOWN), QD (BEFORE BREAKFAST)
     Dates: start: 20180813
  8. NO STUDY DRUG GIVEN [Suspect]
     Active Substance: UNSPECIFIED INGREDIENT

REACTIONS (6)
  - Pain in extremity [Not Recovered/Not Resolved]
  - Post procedural complication [Recovered/Resolved]
  - Hepatic infection [Recovered/Resolved]
  - Skin irritation [None]
  - Ammonia increased [Recovered/Resolved]
  - Cholelithiasis [Not Recovered/Not Resolved]

NARRATIVE: CASE EVENT DATE: 20190107
